FAERS Safety Report 23169221 (Version 1)
Quarter: 2023Q4

REPORT INFORMATION
  Report Type: Report from Study
  Country: CA (occurrence: CA)
  Receive Date: 20231110
  Receipt Date: 20231110
  Transmission Date: 20240109
  Serious: Yes (Disabling, Other)
  Sender: FDA-Public Use
  Company Number: CA-TAKEDA-2022TUS011768

PATIENT
  Age: 49 Year
  Sex: Male

DRUGS (3)
  1. LISDEXAMFETAMINE DIMESYLATE [Suspect]
     Active Substance: LISDEXAMFETAMINE DIMESYLATE
     Indication: Bipolar disorder
     Dosage: 30 MILLIGRAM, QD
     Route: 048
     Dates: start: 202201
  2. LISDEXAMFETAMINE DIMESYLATE [Suspect]
     Active Substance: LISDEXAMFETAMINE DIMESYLATE
     Indication: Borderline personality disorder
     Dosage: 20 MILLIGRAM, QD
     Route: 048
     Dates: start: 20220206
  3. LISDEXAMFETAMINE DIMESYLATE [Suspect]
     Active Substance: LISDEXAMFETAMINE DIMESYLATE
     Indication: Disturbance in attention
     Dosage: 1 DOSAGE FORM, QD
     Route: 048
     Dates: start: 202202

REACTIONS (7)
  - Disability [Unknown]
  - Appetite disorder [Unknown]
  - Headache [Recovered/Resolved]
  - Abdominal discomfort [Recovered/Resolved]
  - Dry mouth [Unknown]
  - Insomnia [Unknown]
  - Product use in unapproved indication [Unknown]

NARRATIVE: CASE EVENT DATE: 20220101
